FAERS Safety Report 5140029-1 (Version None)
Quarter: 2006Q4

REPORT INFORMATION
  Report Type: 
  Country: None (occurrence: None)
  Receive Date: 20061025
  Receipt Date: 20061012
  Transmission Date: 20070319
  Serious: Yes (Other)
  Sender: FDA-Public Use
  Company Number: 2006127033

PATIENT
  Age: 58 Year
  Sex: Male
  Weight: 99.3377 kg

DRUGS (6)
  1. LYRICA [Suspect]
     Indication: NEURALGIA
     Dosage: 225 MG (75 MG, 3 IN 1 D)
     Dates: start: 20061011
  2. NORCO [Concomitant]
  3. WELLBUTRIN SR [Concomitant]
  4. DILTIAZEM HCL [Concomitant]
  5. DECONGESTANT [Concomitant]
  6. SAW PALMETTO [Concomitant]

REACTIONS (5)
  - CONDITION AGGRAVATED [None]
  - HYPOKINESIA [None]
  - NEURALGIA [None]
  - PAIN [None]
  - PARAESTHESIA [None]
